FAERS Safety Report 12235766 (Version 1)
Quarter: 2016Q2

REPORT INFORMATION
  Report Type: Spontaneous
  Country: US (occurrence: US)
  Receive Date: 20160404
  Receipt Date: 20160404
  Transmission Date: 20160815
  Serious: No
  Sender: FDA-Public Use
  Company Number: US-BAYER-2016-063100

PATIENT
  Age: 44 Year
  Sex: Female

DRUGS (1)
  1. MIRENA [Suspect]
     Active Substance: LEVONORGESTREL
     Indication: CONTRACEPTION
     Dosage: 20 MCG/24HR, CONT
     Route: 015
     Dates: start: 201211

REACTIONS (6)
  - Pain in jaw [Unknown]
  - Memory impairment [Unknown]
  - Arthralgia [Unknown]
  - Ear pain [Unknown]
  - Medical device discomfort [Unknown]
  - Ageusia [Unknown]

NARRATIVE: CASE EVENT DATE: 2013
